FAERS Safety Report 7240991-7 (Version None)
Quarter: 2011Q1

REPORT INFORMATION
  Report Type: 
  Country: None (occurrence: None)
  Receive Date: 20110120
  Receipt Date: 20110120
  Transmission Date: 20110831
  Serious: No
  Sender: FDA-Public Use
  Company Number: None

PATIENT
  Age: 13 Year
  Sex: Female

DRUGS (1)
  1. IRINOTECAN HCL [Suspect]
     Indication: SARCOMA
     Dosage: 91 MG DAILY X 5 DAYS IVPB
     Route: 042
     Dates: start: 20100916, end: 20100917

REACTIONS (2)
  - DIARRHOEA [None]
  - DEHYDRATION [None]
